FAERS Safety Report 17834977 (Version 1)
Quarter: 2020Q2

REPORT INFORMATION
  Report Type: Spontaneous
  Country: US (occurrence: US)
  Receive Date: 20200528
  Receipt Date: 20200528
  Transmission Date: 20200714
  Serious: Yes (Other)
  Sender: FDA-Public Use
  Company Number: US-TEVA-2020-US-1239917

PATIENT
  Age: 63 Year
  Sex: Female

DRUGS (1)
  1. AUSTEDO [Suspect]
     Active Substance: DEUTETRABENAZINE
     Indication: DYSKINESIA
     Dosage: DOSAGE IS UNKNOWN
     Route: 065

REACTIONS (2)
  - Myocardial infarction [Unknown]
  - Nausea [Unknown]

NARRATIVE: CASE EVENT DATE: 20200229
